FAERS Safety Report 11274979 (Version 1)
Quarter: 2015Q3

REPORT INFORMATION
  Report Type: Report from Study
  Country: CA (occurrence: CA)
  Receive Date: 20150716
  Receipt Date: 20150716
  Transmission Date: 20151125
  Serious: Yes (Other)
  Sender: FDA-Public Use
  Company Number: CA-ROCHE-1608873

PATIENT
  Sex: Male

DRUGS (10)
  1. ALENDRONATE [Concomitant]
     Active Substance: ALENDRONATE SODIUM
  2. AVAMYS [Concomitant]
     Active Substance: FLUTICASONE FUROATE
  3. PREDNISONE. [Concomitant]
     Active Substance: PREDNISONE
  4. RITUXAN [Suspect]
     Active Substance: RITUXIMAB
     Indication: NEPHROPATHY
  5. AMLODIPINE [Concomitant]
     Active Substance: AMLODIPINE BESYLATE
  6. TOBRADEX [Concomitant]
     Active Substance: DEXAMETHASONE\TOBRAMYCIN
  7. RITUXAN [Suspect]
     Active Substance: RITUXIMAB
     Indication: GRANULOMATOSIS WITH POLYANGIITIS
     Dosage: FREQUENCY: DAY 1 AND 15
     Route: 042
     Dates: start: 20131217
  8. COVERSYL [Concomitant]
     Active Substance: PERINDOPRIL
  9. ATORVASTATIN [Concomitant]
     Active Substance: ATORVASTATIN
  10. PANTOLOC [Concomitant]
     Active Substance: PANTOPRAZOLE SODIUM

REACTIONS (2)
  - Basal cell carcinoma [Recovering/Resolving]
  - Umbilical hernia [Recovered/Resolved]
